FAERS Safety Report 5921844-0 (Version None)
Quarter: 2008Q4

REPORT INFORMATION
  Report Type: 
  Country: None (occurrence: None)
  Receive Date: 20081016
  Receipt Date: 20081016
  Transmission Date: 20090506
  Serious: Yes (Other)
  Sender: FDA-Public Use
  Company Number: None

PATIENT

DRUGS (1)
  1. XYLOCAINE-MPF 2% ASTRAZENECA [Suspect]
     Dosage: 20ML EPIDURAL
     Route: 008
     Dates: start: 20081015, end: 20081015

REACTIONS (1)
  - TREATMENT FAILURE [None]
